FAERS Safety Report 10181228 (Version 1)
Quarter: 2014Q2

REPORT INFORMATION
  Report Type: Spontaneous
  Country: US (occurrence: US)
  Receive Date: 20140519
  Receipt Date: 20140519
  Transmission Date: 20141212
  Serious: No
  Sender: FDA-Public Use
  Company Number: US-AMGEN INC.-USASP2014030266

PATIENT
  Age: 64 Year
  Sex: Female

DRUGS (8)
  1. PROLIA [Suspect]
     Indication: OSTEOPOROSIS POSTMENOPAUSAL
     Dosage: 60 MG, Q6MO
     Route: 065
     Dates: start: 201311
  2. VITAMIN B12                        /00056201/ [Concomitant]
  3. MULTIVITAMIN                       /00097801/ [Concomitant]
  4. FISH OIL [Concomitant]
  5. CALCIUM [Concomitant]
  6. BIOTIN [Concomitant]
  7. PROTONIX [Concomitant]
  8. DESOWEN [Concomitant]

REACTIONS (1)
  - Inappropriate schedule of drug administration [Unknown]
